FAERS Safety Report 22977858 (Version 2)
Quarter: 2023Q4

REPORT INFORMATION
  Report Type: Spontaneous
  Country: JP (occurrence: JP)
  Receive Date: 20230925
  Receipt Date: 20231005
  Transmission Date: 20240110
  Serious: Yes (Hospitalization)
  Sender: FDA-Public Use
  Company Number: JP-SERVIER-S23010687

PATIENT
  Age: 64 Year
  Sex: Male

DRUGS (4)
  1. ONIVYDE [Suspect]
     Active Substance: IRINOTECAN HYDROCHLORIDE
     Indication: Pancreatic carcinoma
     Dosage: 49.8 MG/M2
     Route: 042
     Dates: start: 20200826, end: 2020
  2. ONIVYDE [Suspect]
     Active Substance: IRINOTECAN HYDROCHLORIDE
     Dosage: 49.8 MG/M2
     Route: 042
     Dates: start: 20201014, end: 20201014
  3. LEVOLEUCOVORIN CALCIUM [Concomitant]
     Active Substance: LEVOLEUCOVORIN CALCIUM
     Indication: Pancreatic carcinoma
     Dosage: 166.2 MG/M2
     Route: 042
     Dates: start: 20200826, end: 20201014
  4. FLUOROURACIL [Concomitant]
     Active Substance: FLUOROURACIL
     Indication: Pancreatic carcinoma
     Dosage: 1994.4 MG/M2
     Route: 042
     Dates: start: 20200826, end: 20201014

REACTIONS (3)
  - Pulmonary toxicity [Recovered/Resolved]
  - Neutrophil count decreased [Recovered/Resolved]
  - Off label use [Recovered/Resolved]

NARRATIVE: CASE EVENT DATE: 20200826
